FAERS Safety Report 12808037 (Version 3)
Quarter: 2016Q4

REPORT INFORMATION
  Report Type: Report from Study
  Country: US (occurrence: US)
  Receive Date: 20161004
  Receipt Date: 20161206
  Transmission Date: 20170207
  Serious: Yes (Other)
  Sender: FDA-Public Use
  Company Number: US-BIOGEN-2015BI056071

PATIENT
  Age: 54 Year
  Sex: Female

DRUGS (3)
  1. TYSABRI [Suspect]
     Active Substance: NATALIZUMAB
     Route: 042
     Dates: start: 2006
  2. TYSABRI [Suspect]
     Active Substance: NATALIZUMAB
     Indication: MULTIPLE SCLEROSIS
     Dosage: INFUSED OVER 1 HOUR
     Route: 042
     Dates: start: 20141015, end: 20150402
  3. Z PACK [Concomitant]
     Active Substance: AZITHROMYCIN DIHYDRATE
     Indication: PRODUCT USED FOR UNKNOWN INDICATION
     Route: 065

REACTIONS (17)
  - General physical health deterioration [Recovered/Resolved with Sequelae]
  - Hypoaesthesia [Recovered/Resolved]
  - Anosmia [Recovered/Resolved]
  - Pneumonia bacterial [Recovered/Resolved]
  - Multiple sclerosis relapse [Unknown]
  - Arthritis [Not Recovered/Not Resolved]
  - Meniscus injury [Not Recovered/Not Resolved]
  - Malaise [Recovered/Resolved with Sequelae]
  - Depression [Recovered/Resolved with Sequelae]
  - Bronchitis [Recovered/Resolved]
  - Feeling abnormal [Recovered/Resolved with Sequelae]
  - Ageusia [Recovered/Resolved]
  - Diarrhoea [Recovered/Resolved]
  - Fatigue [Recovered/Resolved with Sequelae]
  - Knee arthroplasty [Recovered/Resolved]
  - Emotional disorder [Recovered/Resolved with Sequelae]
  - Cough [Recovered/Resolved with Sequelae]

NARRATIVE: CASE EVENT DATE: 2015
